FAERS Safety Report 10672986 (Version 2)
Quarter: 2015Q1

REPORT INFORMATION
  Report Type: Report from Study
  Country: CO (occurrence: CO)
  Receive Date: 20141223
  Receipt Date: 20150106
  Transmission Date: 20150720
  Serious: Yes (Other)
  Sender: FDA-Public Use
  Company Number: CO-AMGEN-COLSP2014097122

PATIENT
  Age: 73 Year
  Sex: Female

DRUGS (3)
  1. METOCLOPRAMIDE. [Concomitant]
     Active Substance: METOCLOPRAMIDE
     Indication: PLASMA CELL MYELOMA
     Dosage: 10 MG, PER CHEMO REGIM
     Route: 042
  2. DEXAMETHASONE. [Concomitant]
     Active Substance: DEXAMETHASONE
     Indication: PLASMA CELL MYELOMA
     Dosage: 4 MG, PER CHEMO REGIM
     Route: 042
  3. CARFILZOMIB [Suspect]
     Active Substance: CARFILZOMIB
     Indication: PLASMA CELL MYELOMA
     Dosage: 15 MG/M2, PER CHEMO REGIM
     Route: 042
     Dates: start: 20111206

REACTIONS (1)
  - Bone marrow failure [Not Recovered/Not Resolved]
